FAERS Safety Report 19961257 (Version 2)
Quarter: 2021Q4

REPORT INFORMATION
  Report Type: Report from Study
  Country: AU (occurrence: AU)
  Receive Date: 20211017
  Receipt Date: 20211030
  Transmission Date: 20220303
  Serious: Yes (Other)
  Sender: FDA-Public Use
  Company Number: AU-BAYER-2021A226447

PATIENT

DRUGS (3)
  1. EYLEA [Suspect]
     Active Substance: AFLIBERCEPT
     Indication: Neovascular age-related macular degeneration
     Dosage: INTRAVITREAL INJECTION TO RIGHT EYE; TOTAL OF 6 DOSES ADMINISTERED
     Route: 031
     Dates: start: 20200831
  2. EYLEA [Suspect]
     Active Substance: AFLIBERCEPT
     Dosage: UNK, RIGHT EYE, LAST DOSE BEFORE ADVERSE EVENT
     Dates: start: 20210707, end: 20210707
  3. EYLEA [Suspect]
     Active Substance: AFLIBERCEPT
     Dosage: UNK, RIGHT EYE, CONTINUES EVERY 3 TO 4 MONTHS; LAST DOSE
     Dates: start: 20211007, end: 20211007

REACTIONS (1)
  - Vision blurred [Recovered/Resolved]

NARRATIVE: CASE EVENT DATE: 20211007
